FAERS Safety Report 8364128-6 (Version None)
Quarter: 2012Q2

REPORT INFORMATION
  Report Type: 
  Country: None (occurrence: None)
  Receive Date: 20120516
  Receipt Date: 20120509
  Transmission Date: 20120825
  Serious: Yes (Hospitalization)
  Sender: FDA-Public Use
  Company Number: US-BRISTOL-MYERS SQUIBB COMPANY-16580763

PATIENT
  Age: 16 Year
  Sex: Female

DRUGS (5)
  1. TRAZODONE HCL [Suspect]
  2. LAMICTAL [Suspect]
  3. ZOLOFT [Suspect]
  4. PROZAC [Suspect]
  5. ABILIFY [Suspect]
     Indication: BIPOLAR DISORDER
     Dosage: DOSE INCREASED TO 10MG AND DECREASED TO 5MG

REACTIONS (5)
  - THINKING ABNORMAL [None]
  - WEIGHT INCREASED [None]
  - HICCUPS [None]
  - HYPOMANIA [None]
  - SUICIDAL IDEATION [None]
